FAERS Safety Report 17008623 (Version 1)
Quarter: 2019Q4

REPORT INFORMATION
  Report Type: Spontaneous
  Country: GB (occurrence: GB)
  Receive Date: 20191108
  Receipt Date: 20191108
  Transmission Date: 20200122
  Serious: Yes (Congenital Anomaly)
  Sender: FDA-Public Use
  Company Number: GB-TEVA-2019-GB-1134373

PATIENT
  Age: 80 Year
  Sex: Female
  Weight: 68.5 kg

DRUGS (6)
  1. TRAMADOL. [Suspect]
     Active Substance: TRAMADOL
     Indication: BACK PAIN
     Dosage: 50 MG
     Route: 048
     Dates: start: 201804, end: 20190604
  2. ATENOLOL. [Concomitant]
     Active Substance: ATENOLOL
     Indication: HYPERTENSION
     Dosage: BEEN ON FOR 5 YEARS OR MORE, 1 DF
     Route: 048
  3. OMEPRAZOLE. [Concomitant]
     Active Substance: OMEPRAZOLE
     Dosage: BEEN ON FOR 5 YEARS OR MORE, 1 DF
     Route: 048
  4. METFORMIN [Concomitant]
     Active Substance: METFORMIN HYDROCHLORIDE
     Indication: DIABETES MELLITUS
     Dosage: BEEN ON FOR 5 YEARS OR MORE, 2 DF
     Route: 048
  5. CANDESARTAN. [Concomitant]
     Active Substance: CANDESARTAN
     Indication: HYPERTENSION
     Dosage: BEEN ON FOR 5 YEARS OR MORE, 1 DF
     Route: 048
  6. FUROSEMIDE. [Concomitant]
     Active Substance: FUROSEMIDE
     Indication: OEDEMA
     Dosage: MORNING. BEEN ON FOR 5 YEARS OR MORE, 1 DF
     Route: 048

REACTIONS (9)
  - Depression [Recovering/Resolving]
  - Withdrawal syndrome [Recovering/Resolving]
  - Drug dose titration not performed [Unknown]
  - Agitation [Recovering/Resolving]
  - Tremor [Recovering/Resolving]
  - Derealisation [Unknown]
  - Somnolence [Recovering/Resolving]
  - Depersonalisation/derealisation disorder [Unknown]
  - Anxiety [Recovering/Resolving]

NARRATIVE: CASE EVENT DATE: 20190607
